FAERS Safety Report 9711358 (Version 1)
Quarter: 2013Q4

REPORT INFORMATION
  Report Type: Spontaneous
  Country: US (occurrence: US)
  Receive Date: 20131126
  Receipt Date: 20131126
  Transmission Date: 20140711
  Serious: No
  Sender: FDA-Public Use
  Company Number: US-BRISTOL-MYERS SQUIBB COMPANY-19206184

PATIENT
  Age: 56 Year
  Sex: Female
  Weight: 102.04 kg

DRUGS (5)
  1. BYETTA [Suspect]
     Indication: TYPE 2 DIABETES MELLITUS
     Route: 058
  2. GLYBURIDE + METFORMIN HCL [Suspect]
     Dosage: 1DF:5/500 MG
  3. NOVOLIN N [Suspect]
     Dosage: 1DF:90 UNITS
  4. LISINOPRIL [Concomitant]
  5. FUROSEMIDE [Concomitant]

REACTIONS (3)
  - Blood glucose increased [Unknown]
  - Weight increased [Unknown]
  - Inappropriate schedule of drug administration [Unknown]
